FAERS Safety Report 9712274 (Version 2)
Quarter: 2013Q4

REPORT INFORMATION
  Report Type: Spontaneous
  Country: US (occurrence: US)
  Receive Date: 20131126
  Receipt Date: 20131126
  Transmission Date: 20140711
  Serious: No
  Sender: FDA-Public Use
  Company Number: US-BRISTOL-MYERS SQUIBB COMPANY-18853218

PATIENT
  Age: 71 Year
  Sex: Male
  Weight: 106.57 kg

DRUGS (5)
  1. BYDUREON [Suspect]
     Indication: TYPE 2 DIABETES MELLITUS
     Route: 058
     Dates: start: 20121112
  2. ACTOS [Suspect]
     Dates: start: 201208
  3. ATORVASTATIN [Concomitant]
  4. ASPIRIN [Concomitant]
  5. LOSARTAN [Concomitant]

REACTIONS (1)
  - Weight increased [Unknown]
